FAERS Safety Report 10087108 (Version 1)
Quarter: 2014Q2

REPORT INFORMATION
  Report Type: Report from Study
  Country: AU (occurrence: AU)
  Receive Date: 20140418
  Receipt Date: 20140418
  Transmission Date: 20141212
  Serious: Yes (Death, Hospitalization, Congenital Anomaly, Other)
  Sender: FDA-Public Use
  Company Number: AU-ASTRAZENECA-2014SE26286

PATIENT
  Sex: Female

DRUGS (3)
  1. SEROQUEL XR [Suspect]
     Indication: PSYCHOTIC DISORDER
     Dosage: 50-200 MG/DAY STARTED PRE-PREGNANCY
     Route: 064
  2. BLACKMORES [Concomitant]
     Indication: SUPPLEMENTATION THERAPY
     Dosage: 2 TABLETTS/DAY STARTED AT 1ST TRIMESTER AND STOPPED AT 14-16/40 WKS
     Route: 064
  3. BLACKMORES MORNING SICKNESS FORMULA [Concomitant]
     Indication: VOMITING IN PREGNANCY
     Dosage: 1-3 TABLETS/DAY PRN STARTED AT 1ST TRIMESTER STOPPED AT 14-16/49 WKS
     Route: 064

REACTIONS (1)
  - Anencephaly [Fatal]
